FAERS Safety Report 6542449-7 (Version None)
Quarter: 2010Q1

REPORT INFORMATION
  Report Type: 
  Country: None (occurrence: None)
  Receive Date: 20100119
  Receipt Date: 20100111
  Transmission Date: 20100710
  Serious: Yes (Life-Threatening, Hospitalization, Other)
  Sender: FDA-Public Use
  Company Number: DE-ELI_LILLY_AND_COMPANY-DE201001001538

PATIENT
  Sex: Female

DRUGS (3)
  1. BYETTA [Suspect]
     Indication: TYPE 2 DIABETES MELLITUS
     Dosage: 5 UG, 2/D
     Route: 058
     Dates: start: 20100105, end: 20100101
  2. METFORMIN HCL [Concomitant]
     Dosage: 500 MG, 2/D
  3. LANTUS [Concomitant]
     Dates: end: 20100105

REACTIONS (4)
  - HYPERGLYCAEMIA [None]
  - NAUSEA [None]
  - PNEUMONIA [None]
  - VISUAL IMPAIRMENT [None]
